FAERS Safety Report 8485582-5 (Version None)
Quarter: 2012Q3

REPORT INFORMATION
  Report Type: 
  Country: None (occurrence: None)
  Receive Date: 20120703
  Receipt Date: 20120625
  Transmission Date: 20120928
  Serious: Yes (Other)
  Sender: FDA-Public Use
  Company Number: FR-UCBSA-053486

PATIENT
  Age: 48 Year
  Sex: Female
  Weight: 54 kg

DRUGS (18)
  1. CIMZIA [Suspect]
     Route: 058
     Dates: start: 20110409, end: 20110101
  2. OMEPRAZOLE [Concomitant]
     Dosage: 20 MG DAILY
     Route: 048
  3. TEMAZEPAM [Concomitant]
     Dosage: 1 UNIT DAILY
     Route: 048
  4. VITAMIN D [Concomitant]
     Dosage: 1 UNIT MONTHLY
     Route: 048
  5. CIMZIA [Suspect]
     Indication: PSORIASIS
     Route: 058
     Dates: start: 20110129, end: 20110201
  6. CORTICOIDS [Concomitant]
  7. CIMZIA [Suspect]
     Route: 058
     Dates: start: 20110409, end: 20110101
  8. FORTEO [Concomitant]
  9. PIASCLEDINE [Concomitant]
     Dosage: 1 UNIT DAILY
     Route: 048
  10. CIMZIA [Suspect]
     Dosage: DECREASED TO ONE INJECTION MONTHLY
     Route: 058
     Dates: start: 20111101
  11. CALTRATE D3 [Concomitant]
     Dosage: 1 TAB DAILY
     Route: 048
  12. CIMZIA [Suspect]
     Dosage: DECREASED TO ONE INJECTION MONTHLY
     Route: 058
     Dates: start: 20111101
  13. TRAMADOL HCL [Concomitant]
     Dosage: FOR AROUND 20 YEARS
     Route: 048
  14. NAPROXEN [Concomitant]
     Dosage: FOR 25 YEARS
     Route: 048
  15. PREDNISONE TAB [Concomitant]
     Dosage: 7 MG + 5 MG DAILY
     Route: 048
     Dates: start: 19910101
  16. CIMZIA [Suspect]
     Indication: SPONDYLITIS
     Route: 058
     Dates: start: 20110129, end: 20110201
  17. CIMZIA [Suspect]
     Dosage: DOSE: 400MG
     Route: 058
     Dates: start: 20110226, end: 20110101
  18. CIMZIA [Suspect]
     Dosage: DOSE: 400MG
     Route: 058
     Dates: start: 20110226, end: 20110101

REACTIONS (33)
  - ALOPECIA [None]
  - HEADACHE [None]
  - NIGHT SWEATS [None]
  - INAPPROPRIATE SCHEDULE OF DRUG ADMINISTRATION [None]
  - CONJUNCTIVAL HAEMORRHAGE [None]
  - ABDOMINAL DISTENSION [None]
  - WEIGHT INCREASED [None]
  - BULIMIA NERVOSA [None]
  - DRUG INEFFECTIVE [None]
  - ARTHRITIS INFECTIVE [None]
  - ACCOMMODATION DISORDER [None]
  - APPETITE DISORDER [None]
  - IRRITABILITY [None]
  - PAIN [None]
  - MUCOUS STOOLS [None]
  - HAEMATOCHEZIA [None]
  - HYPERTENSION [None]
  - OEDEMA PERIPHERAL [None]
  - HAIR TEXTURE ABNORMAL [None]
  - HYPERCHOLESTEROLAEMIA [None]
  - OVERDOSE [None]
  - SKIN DISORDER [None]
  - DELIRIUM [None]
  - CELLULITIS [None]
  - MYALGIA [None]
  - INSOMNIA [None]
  - DRY EYE [None]
  - ARTHRALGIA [None]
  - BLOOD URIC ACID INCREASED [None]
  - FAECALOMA [None]
  - ABDOMINAL PAIN [None]
  - FACE OEDEMA [None]
  - SOMNAMBULISM [None]
